FAERS Safety Report 8190490-3 (Version None)
Quarter: 2012Q1

REPORT INFORMATION
  Report Type: 
  Country: None (occurrence: None)
  Receive Date: 20120307
  Receipt Date: 20120228
  Transmission Date: 20120608
  Serious: Yes (Other)
  Sender: FDA-Public Use
  Company Number: PHHY2012FR018290

PATIENT
  Age: 19 Year
  Sex: Male

DRUGS (2)
  1. IBUPROFEN [Suspect]
  2. TAMOXIFEN CITRATE [Suspect]
     Route: 048
     Dates: start: 20111028, end: 20111028

REACTIONS (1)
  - WRONG DRUG ADMINISTERED [None]
